FAERS Safety Report 25972067 (Version 1)
Quarter: 2025Q4

REPORT INFORMATION
  Report Type: Spontaneous
  Country: EU (occurrence: EU)
  Receive Date: 20251029
  Receipt Date: 20251029
  Transmission Date: 20260118
  Serious: Yes (Other)
  Sender: MSN LABORATORIES PRIVATE LIMITED
  Company Number: None

PATIENT

DRUGS (12)
  1. PACLITAXEL [Suspect]
     Active Substance: PACLITAXEL
     Indication: Neoplasm
     Dosage: UNK
     Route: 065
  2. CYCLOPHOSPHAMIDE [Suspect]
     Active Substance: CYCLOPHOSPHAMIDE
     Indication: Neoplasm
     Route: 065
  3. DOCETAXEL [Suspect]
     Active Substance: DOCETAXEL
     Indication: HER2 positive breast cancer
     Dosage: AS PERTUZUMAB + TRASTUZUMAB + DOCETAXEL
     Route: 065
     Dates: start: 202106
  4. DOCETAXEL [Suspect]
     Active Substance: DOCETAXEL
     Indication: Breast cancer
  5. DOXORUBICIN [Suspect]
     Active Substance: DOXORUBICIN
     Indication: Neoplasm
     Dosage: UNK
     Route: 065
  6. PERTUZUMAB [Suspect]
     Active Substance: PERTUZUMAB
     Indication: HER2 positive breast cancer
     Dosage: AS PERTUZUMAB + TRASTUZUMAB + DOCETAXEL
     Route: 065
     Dates: start: 202106
  7. PERTUZUMAB [Suspect]
     Active Substance: PERTUZUMAB
     Indication: Breast cancer
  8. TRASTUZUMAB [Suspect]
     Active Substance: TRASTUZUMAB
     Indication: HER2 positive breast cancer
     Dosage: AS TUCATINIB + CAPECITABIN + TRASTUZUMAB
     Route: 065
     Dates: start: 202302
  9. TRASTUZUMAB [Suspect]
     Active Substance: TRASTUZUMAB
     Indication: Breast cancer
     Dosage: AS PACLITAXEL + TRASTUZUMAB
     Route: 065
     Dates: start: 2016
  10. TRASTUZUMAB [Suspect]
     Active Substance: TRASTUZUMAB
     Indication: Neoplasm
     Dosage: AS PERTUZUMAB + TRASTUZUMAB + DOCETAXEL
     Route: 065
     Dates: start: 202106
  11. TUCATINIB [Concomitant]
     Active Substance: TUCATINIB
     Indication: HER2 positive breast cancer
     Dosage: TUCATINIB + CAPECITABIN + TRASTUZUMAB
     Route: 065
     Dates: start: 202302
  12. CAPECITABINE [Concomitant]
     Active Substance: CAPECITABINE
     Indication: HER2 positive breast cancer
     Dosage: TUCATINIB + CAPECITABIN + TRASTUZUMAB
     Route: 065
     Dates: start: 202302

REACTIONS (7)
  - Paronychia [Unknown]
  - Stomatitis [Recovered/Resolved]
  - Disease recurrence [Unknown]
  - Product use issue [Unknown]
  - Gait inability [Recovered/Resolved]
  - Dizziness [Recovered/Resolved]
  - Asthenia [Recovered/Resolved]

NARRATIVE: CASE EVENT DATE: 20230101
